FAERS Safety Report 8146687-1 (Version None)
Quarter: 2012Q1

REPORT INFORMATION
  Report Type: 
  Country: None (occurrence: None)
  Receive Date: 20120217
  Receipt Date: 20110531
  Transmission Date: 20120608
  Serious: No
  Sender: FDA-Public Use
  Company Number: US-ABBOTT-11P-163-0729233-00

PATIENT
  Sex: Male
  Weight: 81.72 kg

DRUGS (5)
  1. SIMCOR [Suspect]
     Indication: PRODUCT USED FOR UNKNOWN INDICATION
     Dosage: 500/20 MG
     Dates: start: 20100101, end: 20110501
  2. METFORMIN HCL [Concomitant]
     Dates: end: 20110501
  3. SIMCOR [Suspect]
     Indication: PRODUCT USED FOR UNKNOWN INDICATION
     Dosage: 500/40MG AT BEDTIME
     Dates: start: 20110501
  4. HYDROCHLOROTHIAZIDE [Concomitant]
     Indication: PRODUCT USED FOR UNKNOWN INDICATION
  5. METFORMIN HCL [Concomitant]
     Indication: PRODUCT USED FOR UNKNOWN INDICATION
     Dates: start: 20110501

REACTIONS (4)
  - PRURITUS [None]
  - ERYTHEMA [None]
  - DISCOMFORT [None]
  - BLOOD GLUCOSE ABNORMAL [None]
